FAERS Safety Report 6639754 (Version 12)
Quarter: 2014Q2

REPORT INFORMATION
  Report Type: Spontaneous
  Country: US (occurrence: US)
  Receive Date: 20080514
  Receipt Date: 20140426
  Transmission Date: 20141212
  Serious: Yes (Other)
  Sender: FDA-Public Use
  Company Number: PHEH2008US04439

PATIENT
  Age: 59 Year
  Sex: Female

DRUGS (12)
  1. ZOMETA [Suspect]
     Indication: NEOPLASM MALIGNANT
     Dosage: 4 MG, QMO
     Route: 041
     Dates: start: 2003, end: 200405
  2. AREDIA [Suspect]
     Dosage: 90 MG, QMO
     Route: 042
  3. TAMOXIFEN [Concomitant]
     Dosage: UNK UKN, UNK
  4. MINOCIN - SLOW RELEASE [Concomitant]
     Dosage: UNK UKN, UNK
  5. IMIPRAMINE [Concomitant]
     Dosage: UNK UKN, UNK
  6. INDERAL ^IMPERIAL CHEMICAL INDUSTRIES^ [Concomitant]
     Dosage: 20 MG, BID
  7. XANAX [Concomitant]
     Dosage: 0.25 MG, TID
  8. VICOPROFEN [Concomitant]
     Dosage: UNK UKN, UNK
  9. LOPRESSOR [Concomitant]
     Dosage: 5 MG, TID
     Dates: start: 20000815
  10. THALIDOMIDE [Concomitant]
     Dosage: UNK UKN, UNK
  11. LEVAQUIN [Concomitant]
     Dosage: 500 MG, UNK
  12. CALCIUM WITH VITAMIN D [Concomitant]
     Dosage: 600 MG, UNK

REACTIONS (42)
  - Clostridium difficile colitis [Unknown]
  - Spinal osteoarthritis [Unknown]
  - Intervertebral disc degeneration [Unknown]
  - Intervertebral disc disorder [Unknown]
  - Back pain [Unknown]
  - Compression fracture [Unknown]
  - Foot fracture [Unknown]
  - Urinary tract infection [Unknown]
  - Diverticulitis [Unknown]
  - Osteonecrosis of jaw [Unknown]
  - Pain [Unknown]
  - Discomfort [Unknown]
  - Hypophagia [Unknown]
  - Scar [Unknown]
  - Emotional distress [Unknown]
  - Anxiety [Unknown]
  - Life expectancy shortened [Unknown]
  - Anhedonia [Unknown]
  - Physical disability [Unknown]
  - Injury [Unknown]
  - Tooth loss [Unknown]
  - Oral infection [Unknown]
  - Gingival disorder [Unknown]
  - Gingival bleeding [Unknown]
  - Gingivitis [Unknown]
  - Denture wearer [Unknown]
  - Tooth disorder [Recovering/Resolving]
  - Pain in jaw [Unknown]
  - Primary sequestrum [Unknown]
  - Swelling [Unknown]
  - Fistula [Unknown]
  - Swelling face [Unknown]
  - Temperature intolerance [Unknown]
  - Immunoglobulins decreased [Unknown]
  - Herpes zoster [Unknown]
  - Colitis [Unknown]
  - Sensory loss [Unknown]
  - Cystocele [Unknown]
  - Fatigue [Unknown]
  - Oropharyngeal pain [Unknown]
  - Tenderness [Unknown]
  - Dysuria [Unknown]
